FAERS Safety Report 8473209-8 (Version None)
Quarter: 2012Q2

REPORT INFORMATION
  Report Type: 
  Country: None (occurrence: None)
  Receive Date: 20120627
  Receipt Date: 20120622
  Transmission Date: 20120825
  Serious: Yes (Other)
  Sender: FDA-Public Use
  Company Number: US-PFIZER INC-2012150820

PATIENT

DRUGS (1)
  1. XANAX [Suspect]

REACTIONS (7)
  - SLEEP DISORDER [None]
  - DYSPNOEA [None]
  - CHEST PAIN [None]
  - WEIGHT INCREASED [None]
  - VOMITING [None]
  - SKIN DISORDER [None]
  - SCAR [None]
